FAERS Safety Report 6522623-6 (Version None)
Quarter: 2009Q4

REPORT INFORMATION
  Report Type: 
  Country: None (occurrence: None)
  Receive Date: 20091230
  Receipt Date: 20091224
  Transmission Date: 20100525
  Serious: Yes (Death, Hospitalization)
  Sender: FDA-Public Use
  Company Number: PHHO2009AU07964

PATIENT
  Sex: Female
  Weight: 58.6 kg

DRUGS (30)
  1. AFINITOR [Suspect]
     Indication: METASTATIC RENAL CELL CARCINOMA
     Dosage: 10 MG DAILY
     Route: 048
     Dates: start: 20090504, end: 20091207
  2. OXYCONTIN [Concomitant]
  3. COLOXYL WITH SENNA [Concomitant]
  4. LEVOTHYROXINE SODIUM [Concomitant]
  5. FENTANYL-100 [Concomitant]
  6. FRUSEMIDE [Concomitant]
  7. OXYNORM [Concomitant]
  8. SOMAC [Concomitant]
  9. METOCLOPRAMIDE [Concomitant]
  10. ENDEP [Concomitant]
  11. PARACETAMOL [Concomitant]
  12. FLOXACILLIN SODIUM [Concomitant]
  13. MICRALAX [Concomitant]
  14. BISCO-LAX [Concomitant]
  15. NULYTELY [Concomitant]
  16. OXYCODONE [Concomitant]
  17. URAL [Concomitant]
  18. MAGNESIUM HYDROXIDE TAB [Concomitant]
  19. BISACODYL [Concomitant]
  20. MORPHINE [Concomitant]
  21. CLONAZEPAM [Concomitant]
  22. CLEXANE [Concomitant]
  23. TEMAZEPAM [Concomitant]
  24. GAVISCON [Concomitant]
  25. RANITIDINE [Concomitant]
  26. TROPISETRON [Concomitant]
  27. LACTULOSE [Concomitant]
  28. MIDAZOLAM HCL [Concomitant]
  29. PHENOBARBITAL TAB [Concomitant]
  30. GLYCOPYRROLATE [Concomitant]

REACTIONS (1)
  - ANAEMIA [None]
